FAERS Safety Report 12982671 (Version 1)
Quarter: 2016Q4

REPORT INFORMATION
  Report Type: Spontaneous
  Country: US (occurrence: US)
  Receive Date: 20161128
  Receipt Date: 20161128
  Transmission Date: 20170207
  Serious: No
  Sender: FDA-Public Use
  Company Number: None

PATIENT
  Age: 61 Year
  Sex: Female
  Weight: 74.46 kg

DRUGS (1)
  1. CAPECITABINE MYLAN [Suspect]
     Active Substance: CAPECITABINE
     Indication: BREAST CANCER FEMALE
     Route: 048
     Dates: start: 20161024

REACTIONS (4)
  - Fatigue [None]
  - Insomnia [None]
  - Constipation [None]
  - Asthenia [None]
